FAERS Safety Report 16402631 (Version 4)
Quarter: 2020Q2

REPORT INFORMATION
  Report Type: Spontaneous
  Country: US (occurrence: US)
  Receive Date: 20190607
  Receipt Date: 20200618
  Transmission Date: 20200713
  Serious: Yes (Other)
  Sender: FDA-Public Use
  Company Number: US-TEVA-2019-US-1053120

PATIENT
  Sex: Female

DRUGS (7)
  1. ATENOLOL. [Concomitant]
     Active Substance: ATENOLOL
     Route: 065
  2. ATENOLOL. [Concomitant]
     Active Substance: ATENOLOL
     Dosage: 50 MILLIGRAM DAILY;
     Route: 065
  3. CLONAZEPAM ACTAVIS [Suspect]
     Active Substance: CLONAZEPAM
     Indication: ANXIETY
     Route: 065
     Dates: start: 20190502
  4. KLONOPIN ROCHE [Concomitant]
     Dosage: 1 AM AND 1 HS
     Route: 065
  5. CLONAZEPAM ACTAVIS [Suspect]
     Active Substance: CLONAZEPAM
     Indication: PANIC ATTACK
     Route: 065
     Dates: start: 20190402, end: 20190514
  6. CLONAZEPAM ACTAVIS [Suspect]
     Active Substance: CLONAZEPAM
     Indication: WITHDRAWAL SYNDROME
  7. DOXEPIN [Concomitant]
     Active Substance: DOXEPIN
     Route: 065

REACTIONS (13)
  - Seizure [Not Recovered/Not Resolved]
  - Fear [Unknown]
  - Agitation [Unknown]
  - Product substitution issue [Unknown]
  - Malaise [Unknown]
  - Headache [Unknown]
  - Tremor [Unknown]
  - Palpitations [Unknown]
  - Feeling abnormal [Unknown]
  - Drug ineffective [Unknown]
  - Insomnia [Unknown]
  - Withdrawal syndrome [Not Recovered/Not Resolved]
  - Dizziness [Not Recovered/Not Resolved]
